FAERS Safety Report 16986519 (Version 1)
Quarter: 2019Q4

REPORT INFORMATION
  Report Type: Spontaneous
  Country: US (occurrence: US)
  Receive Date: 20190918
  Receipt Date: 20190918
  Transmission Date: 20200122
  Serious: No
  Sender: FDA-Public Use
  Company Number: None

PATIENT
  Sex: Male

DRUGS (1)
  1. CEFTRIAXONE SODIUM. [Suspect]
     Active Substance: CEFTRIAXONE SODIUM
     Indication: MALAISE
     Route: 042
     Dates: start: 20190813, end: 20190903

REACTIONS (3)
  - Pruritus [None]
  - Swelling face [None]
  - Infusion related reaction [None]
